FAERS Safety Report 7641547-4 (Version None)
Quarter: 2011Q3

REPORT INFORMATION
  Report Type: 
  Country: None (occurrence: None)
  Receive Date: 20110728
  Receipt Date: 20110719
  Transmission Date: 20111222
  Serious: Yes (Other)
  Sender: FDA-Public Use
  Company Number: CA-JNJFOC-20110600788

PATIENT
  Sex: Female
  Weight: 72 kg

DRUGS (3)
  1. NAPROXEN [Concomitant]
     Route: 065
  2. PREDNISONE TAB [Concomitant]
     Route: 065
  3. REMICADE [Suspect]
     Indication: RHEUMATOID ARTHRITIS
     Route: 042
     Dates: start: 20080201, end: 20110401

REACTIONS (3)
  - STOMATITIS [None]
  - CHAPPED LIPS [None]
  - LIP BLISTER [None]
